FAERS Safety Report 20663931 (Version 1)
Quarter: 2022Q2

REPORT INFORMATION
  Report Type: Spontaneous
  Country: US (occurrence: None)
  Receive Date: 20220401
  Receipt Date: 20220401
  Transmission Date: 20220721
  Serious: Yes (unspecified)
  Sender: FDA-Public Use
  Company Number: None

PATIENT
  Age: 27 Year
  Sex: Female
  Weight: 108 kg

DRUGS (1)
  1. DUPIXENT [Suspect]
     Active Substance: DUPILUMAB
     Indication: Eczema
     Dosage: OTHER QUANTITY : 2 INJECTION(S);?OTHER FREQUENCY : EVERY TWO WEEKS;?
     Route: 030
     Dates: start: 20220316

REACTIONS (7)
  - Presyncope [None]
  - Nausea [None]
  - Vomiting [None]
  - Eye swelling [None]
  - Diarrhoea [None]
  - Gastrointestinal infection [None]
  - Impaired work ability [None]

NARRATIVE: CASE EVENT DATE: 20220318
